FAERS Safety Report 8366914-5 (Version None)
Quarter: 2012Q2

REPORT INFORMATION
  Report Type: 
  Country: None (occurrence: None)
  Receive Date: 20120515
  Receipt Date: 20120515
  Transmission Date: 20120825
  Serious: No
  Sender: FDA-Public Use
  Company Number: None

PATIENT
  Sex: Female
  Weight: 62.5964 kg

DRUGS (2)
  1. RISPERIDONE [Suspect]
     Indication: AUTISM
     Dosage: 2 MG BID
     Dates: start: 20090401
  2. BETADINE [Concomitant]

REACTIONS (4)
  - AGGRESSION [None]
  - DISEASE RECURRENCE [None]
  - NO THERAPEUTIC RESPONSE [None]
  - DRUG INEFFECTIVE [None]
